FAERS Safety Report 5467891-7 (Version None)
Quarter: 2007Q3

REPORT INFORMATION
  Report Type: 
  Country: None (occurrence: None)
  Receive Date: 20070820
  Receipt Date: 20070507
  Transmission Date: 20080115
  Serious: No
  Sender: FDA-Public Use
  Company Number: WAES 0701USA00741

PATIENT
  Age: 69 Year
  Sex: Male
  Weight: 89.8122 kg

DRUGS (2)
  1. JANUVIA [Suspect]
     Dosage: PO; 100 MG/DAILY/PO
     Route: 048
  2. JANUVIA [Suspect]
     Dosage: PO; 100 MG/DAILY/PO
     Route: 048
     Dates: start: 20070209

REACTIONS (6)
  - DRUG INEFFECTIVE [None]
  - FATIGUE [None]
  - FEELING ABNORMAL [None]
  - MALAISE [None]
  - SOMNOLENCE [None]
  - WRONG TECHNIQUE IN DRUG USAGE PROCESS [None]
